FAERS Safety Report 14592355 (Version 1)
Quarter: 2018Q1

REPORT INFORMATION
  Report Type: Spontaneous
  Country: US (occurrence: US)
  Receive Date: 20180301
  Receipt Date: 20180301
  Transmission Date: 20180509
  Serious: No
  Sender: FDA-Public Use
  Company Number: None

PATIENT
  Age: 53 Year
  Sex: Male

DRUGS (1)
  1. COSENTYX [Suspect]
     Active Substance: SECUKINUMAB

REACTIONS (4)
  - Paraesthesia [None]
  - Psoriasis [None]
  - Skin exfoliation [None]
  - Peripheral swelling [None]

NARRATIVE: CASE EVENT DATE: 20180301
